FAERS Safety Report 15574745 (Version 1)
Quarter: 2018Q4

REPORT INFORMATION
  Report Type: Report from Study
  Country: CA (occurrence: CA)
  Receive Date: 20181101
  Receipt Date: 20181101
  Transmission Date: 20190205
  Serious: Yes (Other)
  Sender: FDA-Public Use
  Company Number: CA-PFIZER INC-2018447139

PATIENT
  Age: 63 Year
  Sex: Female

DRUGS (7)
  1. DOXORUBICIN HYDROCHLORIDE. [Concomitant]
     Active Substance: DOXORUBICIN HYDROCHLORIDE
     Indication: KAPOSI^S SARCOMA
     Dosage: 25 MG/M2, EVERY 3 WEEKS (INTRAVENOUSLY, CYCLIC)
     Route: 042
  2. CYCLOSPORINE. [Concomitant]
     Active Substance: CYCLOSPORINE
     Indication: IMMUNOSUPPRESSION
     Dosage: 175 MG, 2X/DAY
  3. CYCLOSPORINE. [Concomitant]
     Active Substance: CYCLOSPORINE
     Dosage: 50 MG, 2X/DAY
  4. VINCRISTINE SULFATE. [Suspect]
     Active Substance: VINCRISTINE SULFATE
     Indication: KAPOSI^S SARCOMA
     Dosage: 2 MG, EVERY 3 WEEKS (INTRAVENOUSLY, CYCLIC)
     Route: 042
  5. PREDNISONE. [Concomitant]
     Active Substance: PREDNISONE
     Indication: IMMUNOSUPPRESSION
     Dosage: 7.5 MG, DAILY
  6. VINCRISTINE SULFATE. [Suspect]
     Active Substance: VINCRISTINE SULFATE
     Dosage: UNK
  7. BLEOMYCIN SULFATE [Concomitant]
     Active Substance: BLEOMYCIN SULFATE
     Indication: KAPOSI^S SARCOMA
     Dosage: 10 MG/M2, EVERY 3 WEEKS (INTRAVENOUSLY, CYCLIC)
     Route: 042

REACTIONS (1)
  - Neuropathy peripheral [Unknown]
